FAERS Safety Report 15394860 (Version 1)
Quarter: 2018Q3

REPORT INFORMATION
  Report Type: Spontaneous
  Country: IT (occurrence: IT)
  Receive Date: 20180918
  Receipt Date: 20180918
  Transmission Date: 20181010
  Serious: Yes (Other)
  Sender: FDA-Public Use
  Company Number: IT-AXELLIA-001969

PATIENT
  Age: 54 Year
  Sex: Male
  Weight: 65 kg

DRUGS (1)
  1. DAPTOMYCIN. [Suspect]
     Active Substance: DAPTOMYCIN
     Indication: SEPTIC SHOCK
     Route: 040
     Dates: start: 20180712

REACTIONS (4)
  - Eosinophilia [Recovering/Resolving]
  - Off label use [Unknown]
  - Hyperpyrexia [Recovering/Resolving]
  - Eosinophilic pneumonia [Recovering/Resolving]

NARRATIVE: CASE EVENT DATE: 20180802
